FAERS Safety Report 8900680 (Version 1)
Quarter: 2012Q4

REPORT INFORMATION
  Report Type: Report from Study
  Country: BR (occurrence: BR)
  Receive Date: 20121109
  Receipt Date: 20121109
  Transmission Date: 20130627
  Serious: Yes (Other)
  Sender: FDA-Public Use
  Company Number: BR-ROCHE-702311

PATIENT
  Age: 33 None
  Sex: Male
  Weight: 70 kg

DRUGS (15)
  1. RITUXIMAB [Suspect]
     Indication: RHEUMATOID ARTHRITIS
     Dosage: FORM: INFUSION, DOSE OF INFUSION: 100 MG/10ML
     Route: 042
     Dates: start: 20091110, end: 20091125
  2. RITUXIMAB [Suspect]
     Dosage: 1000 MG/ML DOSE
     Route: 042
     Dates: start: 20100605, end: 20100620
  3. RITUXIMAB [Suspect]
     Route: 042
  4. TOCILIZUMAB [Suspect]
     Indication: RHEUMATOID ARTHRITIS
     Route: 065
     Dates: start: 20111013
  5. IBUPROFEN [Concomitant]
     Route: 065
  6. PREDNISONE [Concomitant]
     Route: 065
  7. PREDNISONE [Concomitant]
     Route: 065
  8. CALCIUM [Concomitant]
     Route: 065
  9. GLUCOSAMINE SULFATE [Concomitant]
     Route: 065
  10. FLOTAC [Concomitant]
     Route: 065
  11. OYSTER SHELL CALCIUM [Concomitant]
     Dosage: DRUG: OYSTER CALCIUM
     Route: 065
  12. METHOTREXATE [Concomitant]
  13. PARACETAMOL [Concomitant]
  14. OMEPRAZOLE [Concomitant]
  15. SIMVASTATIN [Concomitant]
     Route: 065

REACTIONS (28)
  - Red blood cell sedimentation rate increased [Unknown]
  - Anaemia [Unknown]
  - Therapeutic response decreased [Unknown]
  - Anal abscess [Recovered/Resolved]
  - Arthralgia [Not Recovered/Not Resolved]
  - Gait disturbance [Unknown]
  - Ill-defined disorder [Not Recovered/Not Resolved]
  - Pyrexia [Unknown]
  - Pharyngitis [Recovered/Resolved]
  - Joint swelling [Not Recovered/Not Resolved]
  - Arthralgia [Not Recovered/Not Resolved]
  - Bone erosion [Recovered/Resolved]
  - Hypersensitivity [Recovered/Resolved]
  - Erythema [Recovered/Resolved]
  - Burning sensation [Recovered/Resolved]
  - Swelling face [Recovered/Resolved]
  - Dyspnoea [Recovered/Resolved]
  - Dysphagia [Recovered/Resolved]
  - Pain [Not Recovered/Not Resolved]
  - Joint swelling [Not Recovered/Not Resolved]
  - Dysstasia [Not Recovered/Not Resolved]
  - Swelling [Recovered/Resolved]
  - Burning sensation [Unknown]
  - Blood cholesterol increased [Not Recovered/Not Resolved]
  - Blood triglycerides increased [Not Recovered/Not Resolved]
  - Drug ineffective [Unknown]
  - Neck pain [Not Recovered/Not Resolved]
  - Back pain [Not Recovered/Not Resolved]
